FAERS Safety Report 21700221 (Version 1)
Quarter: 2022Q4

REPORT INFORMATION
  Report Type: Spontaneous
  Country: CA (occurrence: CA)
  Receive Date: 20221208
  Receipt Date: 20221208
  Transmission Date: 20230113
  Serious: Yes (Other)
  Sender: FDA-Public Use
  Company Number: ALC2022CA005565

PATIENT
  Age: 65 Year
  Sex: Female

DRUGS (1)
  1. SIMBRINZA [Suspect]
     Active Substance: BRIMONIDINE TARTRATE\BRINZOLAMIDE
     Indication: Skin test
     Dosage: UNK
     Route: 065

REACTIONS (6)
  - Skin exfoliation [Unknown]
  - Conjunctival hyperaemia [Unknown]
  - Eyelids pruritus [Unknown]
  - Erythema of eyelid [Unknown]
  - Eye pruritus [Unknown]
  - Eyelid oedema [Unknown]
